FAERS Safety Report 7440963-3 (Version None)
Quarter: 2011Q2

REPORT INFORMATION
  Report Type: 
  Country: None (occurrence: None)
  Receive Date: 20110427
  Receipt Date: 20110414
  Transmission Date: 20111010
  Serious: Yes (Hospitalization)
  Sender: FDA-Public Use
  Company Number: FR-PFIZER INC-2011081779

PATIENT
  Age: 76 Year
  Sex: Male

DRUGS (8)
  1. TRIFLUCAN [Concomitant]
     Dosage: UNK
     Route: 048
     Dates: start: 20110127
  2. REPAGLINIDE [Concomitant]
     Dosage: UNK
  3. ROCALTROL [Concomitant]
     Dosage: UNK
  4. NEBIVOLOL [Concomitant]
     Dosage: UNK
  5. TACROLIMUS [Concomitant]
     Dosage: UNK
  6. DALACINE [Suspect]
     Dosage: 900 MG, 2X/DAY
     Route: 048
     Dates: start: 20110128, end: 20110201
  7. DALACINE [Suspect]
     Indication: DERMO-HYPODERMITIS
     Dosage: UNK
     Dates: start: 20110102, end: 20110122
  8. XATRAL [Concomitant]
     Dosage: UNK

REACTIONS (3)
  - ACUTE GENERALISED EXANTHEMATOUS PUSTULOSIS [None]
  - PRURITUS GENERALISED [None]
  - RASH MACULO-PAPULAR [None]
